FAERS Safety Report 9187833 (Version 2)
Quarter: 2013Q2

REPORT INFORMATION
  Report Type: Spontaneous
  Country: CA (occurrence: CA)
  Receive Date: 20130325
  Receipt Date: 20130426
  Transmission Date: 20140414
  Serious: Yes (Hospitalization)
  Sender: FDA-Public Use
  Company Number: CA-ELI_LILLY_AND_COMPANY-CA201303005425

PATIENT
  Age: 65 Year
  Sex: Female
  Weight: 54.4 kg

DRUGS (9)
  1. FORTEO [Suspect]
     Indication: OSTEOPOROSIS
     Dosage: 20 UG, QD
     Route: 058
     Dates: start: 20110706
  2. RAMIPRIL [Concomitant]
  3. CLOPIDOGREL MYLAN [Concomitant]
  4. ATORVASTATIN [Concomitant]
  5. VITAMIN D [Concomitant]
  6. VERAPAMIL [Concomitant]
  7. ADVAIR [Concomitant]
  8. ATROVENT [Concomitant]
  9. ASA [Concomitant]

REACTIONS (1)
  - Convulsion [Unknown]
